FAERS Safety Report 7319141-4 (Version None)
Quarter: 2011Q1

REPORT INFORMATION
  Report Type: 
  Country: None (occurrence: None)
  Receive Date: 20110228
  Receipt Date: 20110216
  Transmission Date: 20110831
  Serious: Yes (Other)
  Sender: FDA-Public Use
  Company Number: PHFR2010GB04656

PATIENT
  Sex: Female

DRUGS (5)
  1. CLOZARIL [Suspect]
     Indication: SCHIZOPHRENIA
     Route: 048
     Dates: start: 20080701
  2. ESOMEPRAZOLE [Concomitant]
     Indication: GASTRITIS
     Dosage: 20 MG, UNK
     Route: 048
  3. CLOZARIL [Suspect]
     Dosage: 550 MG, UNK
     Route: 048
     Dates: end: 20100922
  4. SERTRALINE HYDROCHLORIDE [Concomitant]
     Indication: AFFECTIVE DISORDER
     Dosage: 150 MG, UNK
     Route: 048
  5. VALPROATE SODIUM [Concomitant]
     Indication: AFFECTIVE DISORDER
     Dosage: 1 G, UNK
     Route: 048

REACTIONS (5)
  - PALPITATIONS [None]
  - ELECTROCARDIOGRAM QT PROLONGED [None]
  - HEART RATE INCREASED [None]
  - NO THERAPEUTIC RESPONSE [None]
  - DYSPNOEA [None]
